FAERS Safety Report 7395660-X (Version None)
Quarter: 2011Q2

REPORT INFORMATION
  Report Type: 
  Country: None (occurrence: None)
  Receive Date: 20110405
  Receipt Date: 20110329
  Transmission Date: 20111010
  Serious: Yes (Other)
  Sender: FDA-Public Use
  Company Number: US-TEVA-273674USA

PATIENT
  Sex: Male
  Weight: 64.468 kg

DRUGS (9)
  1. MILK THISTLE [Concomitant]
     Indication: PROPHYLAXIS
  2. UNKNOWN [Concomitant]
     Indication: BIPOLAR DISORDER
  3. ERGOCALCIFEROL [Concomitant]
  4. INTERFERON BETA-1A [Suspect]
     Indication: MULTIPLE SCLEROSIS
     Route: 058
     Dates: start: 20100510
  5. SERTRALINE HYDROCHLORIDE [Concomitant]
     Indication: DEPRESSION
  6. SERTRALINE HYDROCHLORIDE [Concomitant]
     Indication: BIPOLAR DISORDER
     Dates: start: 20100609
  7. METFORMIN [Concomitant]
     Indication: TYPE 2 DIABETES MELLITUS
  8. BACLOFEN [Suspect]
     Indication: PAIN
     Dates: end: 20101124
  9. PRINZIDE [Concomitant]
     Indication: HYPERTENSION

REACTIONS (5)
  - VISUAL IMPAIRMENT [None]
  - MUSCLE SPASMS [None]
  - SUICIDAL IDEATION [None]
  - DEPRESSION [None]
  - PAIN IN EXTREMITY [None]
